FAERS Safety Report 25322521 (Version 2)
Quarter: 2025Q2

REPORT INFORMATION
  Report Type: Spontaneous
  Country: DE (occurrence: DE)
  Receive Date: 20250516
  Receipt Date: 20250530
  Transmission Date: 20250717
  Serious: Yes (Hospitalization, Other)
  Sender: AUROBINDO
  Company Number: DE-002147023-NVSC2025DE068235

PATIENT
  Sex: Female

DRUGS (3)
  1. LETROZOLE [Suspect]
     Active Substance: LETROZOLE
     Indication: Breast cancer
     Route: 065
  2. KISQALI [Suspect]
     Active Substance: RIBOCICLIB SUCCINATE
     Indication: Breast cancer
     Route: 065
  3. XGEVA [Concomitant]
     Active Substance: DENOSUMAB
     Indication: Product used for unknown indication
     Route: 065

REACTIONS (19)
  - Bronchitis [Unknown]
  - Dyspnoea [Unknown]
  - Metastases to bone [Unknown]
  - Metastases to lung [Unknown]
  - Breast cancer recurrent [Unknown]
  - Taste disorder [Unknown]
  - Dysphagia [Unknown]
  - Dysgeusia [Unknown]
  - Tongue dry [Unknown]
  - Tongue biting [Unknown]
  - Oedema peripheral [Unknown]
  - Alopecia [Unknown]
  - Nocturia [Unknown]
  - Pollakiuria [Unknown]
  - Weight decreased [Unknown]
  - Osteoporosis [Unknown]
  - Product taste abnormal [Unknown]
  - Incorrect dose administered [Unknown]
  - Product dose omission issue [Unknown]

NARRATIVE: CASE EVENT DATE: 20230101
